FAERS Safety Report 13448360 (Version 1)
Quarter: 2017Q2

REPORT INFORMATION
  Report Type: Report from Study
  Country: CO (occurrence: CO)
  Receive Date: 20170417
  Receipt Date: 20170417
  Transmission Date: 20170830
  Serious: Yes (Hospitalization)
  Sender: FDA-Public Use
  Company Number: CO-ELI_LILLY_AND_COMPANY-CO201704004877

PATIENT
  Age: 43 Year
  Sex: Male

DRUGS (1)
  1. CETUXIMAB. [Suspect]
     Active Substance: CETUXIMAB
     Indication: PRODUCT USED FOR UNKNOWN INDICATION
     Dosage: 250 DF, OTHER, FOUR TIMES A MONTH
     Route: 065

REACTIONS (5)
  - Yellow skin [Unknown]
  - Eye colour change [Unknown]
  - Decreased appetite [Unknown]
  - Gastritis [Unknown]
  - Dermatitis [Unknown]
